FAERS Safety Report 10931961 (Version 1)
Quarter: 2015Q1

REPORT INFORMATION
  Report Type: Report from Study
  Country: FR (occurrence: FR)
  Receive Date: 20150319
  Receipt Date: 20150319
  Transmission Date: 20150721
  Serious: Yes (Disabling, Other)
  Sender: FDA-Public Use
  Company Number: FR-MYLANLABS-2015M1008196

PATIENT

DRUGS (5)
  1. METHOTREXATE SODIUM. [Suspect]
     Active Substance: METHOTREXATE SODIUM
     Dosage: 20 MG, UNK
  2. METHOTREXATE SODIUM. [Suspect]
     Active Substance: METHOTREXATE SODIUM
     Indication: PSORIASIS
     Dosage: 15 MG, QW
     Dates: start: 20121130, end: 20130225
  3. METHOTREXATE SODIUM. [Suspect]
     Active Substance: METHOTREXATE SODIUM
     Dosage: 20 MG, QW
     Dates: start: 20130809, end: 20131114
  4. METHOTREXATE SODIUM. [Suspect]
     Active Substance: METHOTREXATE SODIUM
     Dosage: 17.5 MG, QW
     Route: 048
     Dates: start: 20130225, end: 20130809
  5. METHOTREXATE SODIUM. [Suspect]
     Active Substance: METHOTREXATE SODIUM
     Dosage: 17.5 MG, QW
     Route: 048
     Dates: start: 20131114, end: 20140516

REACTIONS (3)
  - Skin fissures [Not Recovered/Not Resolved]
  - Drug ineffective [Not Recovered/Not Resolved]
  - Hyperkeratosis [Not Recovered/Not Resolved]

NARRATIVE: CASE EVENT DATE: 20130225
